FAERS Safety Report 6272825-1 (Version None)
Quarter: 2009Q3

REPORT INFORMATION
  Report Type: 
  Country: None (occurrence: None)
  Receive Date: 20090717
  Receipt Date: 20090703
  Transmission Date: 20100115
  Serious: Yes (Other)
  Sender: FDA-Public Use
  Company Number: FR-GENENTECH-282413

PATIENT
  Sex: Male

DRUGS (9)
  1. RITUXIMAB [Suspect]
     Indication: B-CELL LYMPHOMA
     Dosage: 375 MG/M2, UNK
     Route: 042
     Dates: start: 20070810
  2. RITUXIMAB [Suspect]
     Dosage: 625 MG, UNK
     Dates: start: 20080402
  3. RITUXIMAB [Suspect]
     Dosage: 636 MG, UNK
     Dates: start: 20080703
  4. DOXORUBICIN HCL [Concomitant]
     Indication: DRUG USE FOR UNKNOWN INDICATION
     Dosage: 25 MG/M2, UNK
  5. ETOPOSIDE [Concomitant]
     Indication: DRUG USE FOR UNKNOWN INDICATION
     Dosage: 100 MG/M2, UNK
  6. CYCLOPHOSPHAMIDE [Concomitant]
     Indication: DRUG USE FOR UNKNOWN INDICATION
     Dosage: 600 MG/M2, UNK
  7. CORTANCYL [Concomitant]
     Indication: DRUG USE FOR UNKNOWN INDICATION
     Dosage: 344 MG, UNK
  8. ZELITREX [Concomitant]
     Indication: DRUG USE FOR UNKNOWN INDICATION
  9. LITHIODERM [Concomitant]
     Indication: DERMATITIS
     Dosage: 2 UNK, QD
     Dates: start: 20090429, end: 20090629

REACTIONS (1)
  - HAIR FOLLICLE TUMOUR BENIGN [None]
